FAERS Safety Report 6427403 (Version 23)
Quarter: 2014Q1

REPORT INFORMATION
  Report Type: Spontaneous
  Country: US (occurrence: US)
  Receive Date: 20070926
  Receipt Date: 20140312
  Transmission Date: 20141002
  Serious: Yes (Death, Hospitalization, Disabling, Other)
  Sender: FDA-Public Use
  Company Number: PHEH2007US12546

PATIENT
  Age: 78 Year
  Sex: Female

DRUGS (28)
  1. ZOMETA [Suspect]
     Dosage: 4 MG, QW4
     Route: 042
     Dates: start: 200402, end: 2006
  2. AREDIA [Suspect]
     Dosage: 90 MG,
     Route: 042
  3. PREDNISONE [Concomitant]
  4. ACETAMINOPHEN [Concomitant]
  5. NYSTATIN [Concomitant]
  6. TRILISATE [Concomitant]
  7. LEXAPRO [Concomitant]
  8. DECADRON [Concomitant]
  9. ASPIRIN [Concomitant]
  10. IBUPROFEN [Concomitant]
  11. HYDROCODONE [Concomitant]
     Dosage: 5 MG, Q6H
     Route: 048
  12. AMBIEN [Concomitant]
     Dosage: 5 MG, QHS PRN
  13. LOVENOX [Concomitant]
     Dosage: 40 MG, UNK
     Route: 058
  14. SENOKOT                                 /UNK/ [Concomitant]
     Route: 048
  15. XANAX [Concomitant]
     Dosage: 0.5 MG, PRN
  16. VICODIN [Concomitant]
  17. LYRICA [Concomitant]
     Dosage: 75 MG, BID
     Route: 048
  18. ZOLPIDEM [Concomitant]
     Dosage: 5 MG, QHS
     Route: 048
  19. COLACE [Concomitant]
  20. REVLIMID [Concomitant]
     Dosage: 1 DF, QD
  21. TEMAZEPAM [Concomitant]
  22. OXYCONTIN [Concomitant]
  23. ZITHROMAX [Concomitant]
     Dosage: 500 MG, QD
     Route: 048
  24. ZITHROMAX [Concomitant]
     Dosage: 250 MG, QD
     Route: 048
  25. LEVAQUIN [Concomitant]
     Dosage: 500 MG, QD
     Route: 048
  26. LIDODERM [Concomitant]
  27. ALKERAN [Concomitant]
  28. THALIDOMIDE [Concomitant]

REACTIONS (139)
  - Plasma cell myeloma [Fatal]
  - Decreased appetite [Unknown]
  - Back pain [Unknown]
  - Osteoarthritis [Unknown]
  - Osteonecrosis of jaw [Unknown]
  - Pain [Unknown]
  - Infection [Unknown]
  - Deformity [Unknown]
  - Anxiety [Unknown]
  - Mastoiditis [Unknown]
  - Emotional distress [Unknown]
  - Pneumonia [Unknown]
  - Cough [Unknown]
  - Pyrexia [Unknown]
  - Nasal congestion [Unknown]
  - Wound [Unknown]
  - Constipation [Unknown]
  - Insomnia [Unknown]
  - Headache [Unknown]
  - Swelling face [Unknown]
  - Local swelling [Unknown]
  - Pruritus generalised [Unknown]
  - Rash [Unknown]
  - Confusional state [Unknown]
  - Erythema [Unknown]
  - Spinal osteoarthritis [Unknown]
  - Spinal column stenosis [Unknown]
  - Neuropathy peripheral [Unknown]
  - Herpes zoster [Unknown]
  - Sciatica [Unknown]
  - Chest pain [Unknown]
  - Anaemia [Unknown]
  - Pulmonary mass [Unknown]
  - Ischaemia [Unknown]
  - Fall [Unknown]
  - Pelvic haematoma [Unknown]
  - Dry skin [Unknown]
  - Dry mouth [Unknown]
  - Hypoaesthesia [Unknown]
  - Plasmacytosis [Unknown]
  - Pelvic fracture [Unknown]
  - Gait disturbance [Unknown]
  - Dyspnoea [Unknown]
  - Pulmonary embolism [Unknown]
  - Osteopenia [Unknown]
  - Weight increased [Unknown]
  - Chronic obstructive pulmonary disease [Unknown]
  - Atelectasis [Unknown]
  - Pleural fibrosis [Unknown]
  - Hypokalaemia [Unknown]
  - Vision blurred [Unknown]
  - Scoliosis [Unknown]
  - Compression fracture [Unknown]
  - Intervertebral disc protrusion [Unknown]
  - Paraproteinaemia [Fatal]
  - Osteoporosis [Unknown]
  - Malaise [Unknown]
  - Fatigue [Unknown]
  - Dehydration [Unknown]
  - Gastroenteritis [Unknown]
  - Pancytopenia [Unknown]
  - Depression [Unknown]
  - Bone cancer [Unknown]
  - Cardiomegaly [Unknown]
  - Alopecia [Unknown]
  - Cataract [Unknown]
  - Bronchitis [Unknown]
  - Metastases to bone [Unknown]
  - Nausea [Unknown]
  - Radius fracture [Unknown]
  - Neuralgia [Unknown]
  - Haemorrhage intracranial [Unknown]
  - Subdural haematoma [Unknown]
  - Goitre [Unknown]
  - Rib fracture [Unknown]
  - Deafness [Unknown]
  - Emphysema [Unknown]
  - Decubitus ulcer [Unknown]
  - Immune system disorder [Unknown]
  - Edentulous [Unknown]
  - Bone loss [Unknown]
  - Pain in jaw [Unknown]
  - Tremor [Unknown]
  - Vomiting [Unknown]
  - Lung neoplasm malignant [Unknown]
  - Splenic calcification [Unknown]
  - Aortic arteriosclerosis [Unknown]
  - Aortic calcification [Unknown]
  - Hypertrophy [Unknown]
  - Ligament disorder [Unknown]
  - Pubis fracture [Unknown]
  - Myositis ossificans [Unknown]
  - Osteosclerosis [Unknown]
  - Osteolysis [Unknown]
  - Interstitial lung disease [Unknown]
  - Lung infiltration [Unknown]
  - Gingival inflammation [Unknown]
  - Loose tooth [Unknown]
  - Mastication disorder [Unknown]
  - Seborrhoea [Unknown]
  - Measles [Unknown]
  - Mumps [Unknown]
  - Varicella [Unknown]
  - Arthritis [Unknown]
  - Hypoxia [Unknown]
  - Hypoglycaemia [Unknown]
  - Bone marrow oedema [Unknown]
  - Ulna fracture [Unknown]
  - Joint swelling [Unknown]
  - Head injury [Unknown]
  - Traumatic haemorrhage [Unknown]
  - Facial bones fracture [Unknown]
  - Haematoma [Unknown]
  - Osteonecrosis [Unknown]
  - Asthenia [Unknown]
  - Dizziness [Unknown]
  - Wrist fracture [Unknown]
  - Chondrocalcinosis [Unknown]
  - Malignant melanoma [Unknown]
  - Mitral valve incompetence [Unknown]
  - Tricuspid valve incompetence [Unknown]
  - Respiratory failure [Unknown]
  - Thyroid disorder [Unknown]
  - Hepatic cyst [Unknown]
  - Calcinosis [Unknown]
  - Soft tissue disorder [Unknown]
  - Intervertebral disc disorder [Unknown]
  - Tympanosclerosis [Unknown]
  - Otosclerosis [Unknown]
  - Ear pruritus [Unknown]
  - Sinus disorder [Unknown]
  - Bone swelling [Unknown]
  - Exposed bone in jaw [Unknown]
  - Fibromatosis [Unknown]
  - Gingivitis [Unknown]
  - Dental plaque [Unknown]
  - Tooth deposit [Unknown]
  - Secretion discharge [Unknown]
  - Purulent discharge [Unknown]
